FAERS Safety Report 4386410-X (Version None)
Quarter: 2004Q2

REPORT INFORMATION
  Report Type: 
  Country: None (occurrence: None)
  Receive Date: 20040629
  Receipt Date: 20031104
  Transmission Date: 20050107
  Serious: Yes (Other)
  Sender: FDA-Public Use
  Company Number: US-BRISTOL-MYERS SQUIBB COMPANY-12426987

PATIENT
  Age: 63 Year
  Sex: Female

DRUGS (4)
  1. BMS188667 [Concomitant]
     Indication: RHEUMATOID ARTHRITIS
     Route: 042
     Dates: start: 20020530
  2. METHOTREXATE [Suspect]
     Dates: start: 19920506
  3. DYAZIDE [Concomitant]
     Dates: start: 19981222
  4. FOLIC ACID [Concomitant]
     Dates: start: 19920506

REACTIONS (1)
  - BASAL CELL CARCINOMA [None]
